FAERS Safety Report 17008049 (Version 1)
Quarter: 2019Q4

REPORT INFORMATION
  Report Type: Spontaneous
  Country: US (occurrence: US)
  Receive Date: 20191108
  Receipt Date: 20191108
  Transmission Date: 20200122
  Serious: No
  Sender: FDA-Public Use
  Company Number: US-GLAXOSMITHKLINE-US2019199200

PATIENT
  Age: 78 Year
  Sex: Female

DRUGS (2)
  1. VOLTAREN [Suspect]
     Active Substance: DICLOFENAC SODIUM
     Indication: CONTUSION
  2. VOLTAREN [Suspect]
     Active Substance: DICLOFENAC SODIUM
     Indication: SPONDYLITIS
     Dosage: UNK,(5 TIMES A DAY)
     Route: 061

REACTIONS (3)
  - Product use in unapproved indication [Unknown]
  - Drug effective for unapproved indication [Unknown]
  - Product administered at inappropriate site [Unknown]
